FAERS Safety Report 17431507 (Version 2)
Quarter: 2020Q1

REPORT INFORMATION
  Report Type: Report from Study
  Country: TR (occurrence: TR)
  Receive Date: 20200218
  Receipt Date: 20200222
  Transmission Date: 20200409
  Serious: Yes (Life-Threatening, Hospitalization, Other)
  Sender: FDA-Public Use
  Company Number: NVSC2020TR039594

PATIENT
  Age: 69 Year
  Sex: Male
  Weight: 81.1 kg

DRUGS (17)
  1. DERMENT [Concomitant]
     Indication: DEMENTIA
     Dosage: UNK
     Route: 065
     Dates: start: 20130101
  2. ATACAND [Concomitant]
     Active Substance: CANDESARTAN CILEXETIL
     Indication: HYPERTENSION
     Dosage: UNK
     Route: 065
     Dates: start: 20070101
  3. TAMIFLU [Concomitant]
     Active Substance: OSELTAMIVIR PHOSPHATE
     Indication: PROPHYLAXIS
     Dosage: UNK
     Route: 065
     Dates: start: 20200212, end: 20200219
  4. PEMBROLIZUMAB. [Suspect]
     Active Substance: PEMBROLIZUMAB
     Indication: NON-SMALL CELL LUNG CANCER
     Dosage: UNK
     Route: 042
     Dates: start: 20191118
  5. ULCURAN [Concomitant]
     Active Substance: RANITIDINE HYDROCHLORIDE
     Indication: PROPHYLAXIS
     Dosage: UNK
     Route: 065
     Dates: start: 20200212, end: 20200219
  6. IPRAVENT (IPRATROPIUM BROMIDE) [Concomitant]
     Indication: CHRONIC OBSTRUCTIVE PULMONARY DISEASE
     Dosage: UNK
     Route: 065
     Dates: start: 20190410
  7. MEXIA [Concomitant]
     Indication: DEMENTIA
     Dosage: UNK
     Route: 065
     Dates: start: 20130101
  8. VASTAREL [Concomitant]
     Active Substance: TRIMETAZIDINE DIHYDROCHLORIDE
     Indication: CARDIAC OPERATION
     Dosage: UNK
     Route: 065
     Dates: start: 20190311
  9. PREDNOL [Concomitant]
     Indication: HEPATIC ENZYME INCREASED
     Dosage: UNK
     Route: 065
     Dates: start: 20191225
  10. BRILINTA [Concomitant]
     Active Substance: TICAGRELOR
     Indication: CARDIAC OPERATION
     Dosage: UNK
     Route: 065
     Dates: start: 20190408
  11. DILTIZEM [Concomitant]
     Indication: CARDIAC OPERATION
     Dosage: UNK
     Route: 065
     Dates: start: 20070101
  12. NAPROSYN [Concomitant]
     Active Substance: NAPROXEN
     Indication: PROPHYLAXIS
     Dosage: UNK
     Route: 065
     Dates: start: 20190801
  13. ANORO ELLIPTA [Concomitant]
     Active Substance: UMECLIDINIUM BROMIDE\VILANTEROL TRIFENATATE
     Indication: CHRONIC OBSTRUCTIVE PULMONARY DISEASE
     Dosage: UNK
     Route: 065
     Dates: start: 20190410
  14. QUET [Concomitant]
     Active Substance: QUETIAPINE FUMARATE
     Indication: DEMENTIA
     Dosage: UNK
     Route: 065
     Dates: start: 20130101
  15. CANAKINUMAB. [Suspect]
     Active Substance: CANAKINUMAB
     Indication: NON-SMALL CELL LUNG CANCER
     Dosage: UNK
     Route: 058
     Dates: start: 20191118
  16. LANSOR [Concomitant]
     Active Substance: LANSOPRAZOLE
     Indication: PROPHYLAXIS
     Dosage: UNK
     Route: 065
     Dates: start: 20070101
  17. LUSTRAL [Concomitant]
     Active Substance: SERTRALINE HYDROCHLORIDE
     Indication: DEPRESSION
     Dosage: UNK
     Route: 065
     Dates: start: 20180918

REACTIONS (3)
  - Dyspnoea [Recovering/Resolving]
  - Pneumonia bacterial [Recovering/Resolving]
  - Pneumonia fungal [Recovering/Resolving]

NARRATIVE: CASE EVENT DATE: 20200211
